FAERS Safety Report 23940721 (Version 1)
Quarter: 2024Q2

REPORT INFORMATION
  Report Type: Other
  Country: CN (occurrence: CN)
  Receive Date: 20240605
  Receipt Date: 20240605
  Transmission Date: 20240716
  Serious: Yes (Hospitalization)
  Sender: FDA-Public Use
  Company Number: CN-QILU PHARMACEUTICAL (HAINAN) CO.  LTD.-QLH-000091-2024

PATIENT
  Age: 57 Year
  Sex: Female
  Weight: 63 kg

DRUGS (2)
  1. OXALIPLATIN [Suspect]
     Active Substance: OXALIPLATIN
     Indication: Colon cancer
     Dosage: 150 MG ONCE A DAY (QD)
     Route: 041
     Dates: start: 20240520, end: 20240520
  2. DEXTROSE [Concomitant]
     Active Substance: DEXTROSE\DEXTROSE MONOHYDRATE
     Indication: Colon cancer
     Dosage: 500 ML ONCE DAILY
     Route: 041
     Dates: start: 20240520, end: 20240520

REACTIONS (1)
  - Pseudocellulitis [Recovered/Resolved]

NARRATIVE: CASE EVENT DATE: 20240520
